FAERS Safety Report 8968279 (Version 1)
Quarter: 2012Q4

REPORT INFORMATION
  Report Type: 
  Country: US (occurrence: US)
  Receive Date: 20121217
  Receipt Date: 20121217
  Transmission Date: 20130627
  Serious: Yes (Other)
  Sender: FDA-Public Use
  Company Number: US-TEVA-375497USA

PATIENT

DRUGS (1)
  1. AMPHETAMINE W/DEXTROAMPHETAMINE [Suspect]

REACTIONS (5)
  - Sinus tachycardia [Unknown]
  - Hypermetabolism [Unknown]
  - Drug ineffective [Unknown]
  - Angina pectoris [Unknown]
  - Arthralgia [Unknown]
